FAERS Safety Report 6158687-1 (Version None)
Quarter: 2009Q2

REPORT INFORMATION
  Report Type: 
  Country: None (occurrence: None)
  Receive Date: 20090417
  Receipt Date: 20090408
  Transmission Date: 20091009
  Serious: Yes (Hospitalization, Congenital Anomaly)
  Sender: FDA-Public Use
  Company Number: A0748191A

PATIENT
  Sex: Female
  Weight: 1 kg

DRUGS (6)
  1. PAXIL [Suspect]
     Indication: DEPRESSION
     Dates: start: 20070101, end: 20070101
  2. PAROXETINE HCL [Suspect]
     Indication: DRUG USE FOR UNKNOWN INDICATION
     Dosage: 30MG UNKNOWN
     Dates: start: 20040121, end: 20040827
  3. PAXIL CR [Suspect]
     Indication: DRUG USE FOR UNKNOWN INDICATION
     Dosage: 37.5MG UNKNOWN
     Dates: start: 20030813, end: 20040114
  4. VITAMIN TAB [Concomitant]
  5. LIDOCAINE [Concomitant]
     Dates: start: 20070718
  6. ZOFRAN [Concomitant]

REACTIONS (4)
  - CARDIAC DISORDER [None]
  - DRUG EXPOSURE DURING PREGNANCY [None]
  - MULTIPLE CONGENITAL ABNORMALITIES [None]
  - PATENT DUCTUS ARTERIOSUS [None]
